FAERS Safety Report 7493517-7 (Version None)
Quarter: 2011Q2

REPORT INFORMATION
  Report Type: 
  Country: None (occurrence: None)
  Receive Date: 20110520
  Receipt Date: 20110518
  Transmission Date: 20111010
  Serious: Yes (Death, Hospitalization)
  Sender: FDA-Public Use
  Company Number: CA-MYLANLABS-2011S1006594

PATIENT
  Age: 61 Year
  Sex: Male

DRUGS (17)
  1. LIPITOR [Concomitant]
  2. EZETIMIBE [Concomitant]
  3. NITROLINGUAL [Concomitant]
  4. AMIODARONE HCL [Suspect]
     Indication: ATRIAL FIBRILLATION
     Route: 048
     Dates: start: 20080301
  5. ENALAPRIL MALEATE [Concomitant]
  6. METFORMIN HCL [Concomitant]
  7. ISOSORBID MONONITRATE [Concomitant]
  8. NORVASC [Concomitant]
  9. AMIODARONE HCL [Suspect]
     Route: 048
     Dates: end: 20090301
  10. AMIODARONE HCL [Suspect]
     Dosage: 200MG FIVE DAYS PER WEEK
     Route: 048
     Dates: start: 20090301
  11. FUROSEMIDE [Concomitant]
  12. SYNTHROID [Concomitant]
  13. PREVACID [Concomitant]
  14. AMIODARONE HCL [Suspect]
     Route: 048
     Dates: end: 20090301
  15. AMIODARONE HCL [Suspect]
     Indication: HEART RATE IRREGULAR
     Route: 048
     Dates: start: 20080301
  16. AMIODARONE HCL [Suspect]
     Dosage: 200MG FIVE DAYS PER WEEK
     Route: 048
     Dates: start: 20090301
  17. ASPIRIN [Concomitant]

REACTIONS (5)
  - DYSPNOEA [None]
  - LIVER DISORDER [None]
  - H1N1 INFLUENZA [None]
  - HAEMOPTYSIS [None]
  - COMA [None]
